FAERS Safety Report 9788565 (Version 1)
Quarter: 2013Q4

REPORT INFORMATION
  Report Type: Spontaneous
  Country: DE (occurrence: DE)
  Receive Date: 20131230
  Receipt Date: 20131230
  Transmission Date: 20140711
  Serious: Yes (Other)
  Sender: FDA-Public Use
  Company Number: PHHY2013DE152941

PATIENT
  Sex: Female

DRUGS (4)
  1. LEPONEX [Suspect]
     Indication: SCHIZOPHRENIA
     Dosage: UNK UKN, UNK
     Route: 048
     Dates: start: 2011
  2. LEPONEX [Suspect]
     Dosage: 25 MG, UNK
  3. LEPONEX [Suspect]
     Dosage: 50 MG, UNK
  4. LEPONEX [Suspect]
     Dosage: 100 MG, UNK
     Route: 048
     Dates: start: 20131226, end: 20131226

REACTIONS (4)
  - Asthma [Recovered/Resolved]
  - Dyspnoea [Recovered/Resolved]
  - Panic disorder [Recovered/Resolved]
  - Extra dose administered [Recovered/Resolved]
